FAERS Safety Report 9715868 (Version 2)
Quarter: 2014Q1

REPORT INFORMATION
  Report Type: Report from Study
  Country: JP (occurrence: JP)
  Receive Date: 20131127
  Receipt Date: 20140117
  Transmission Date: 20141002
  Serious: Yes (Death)
  Sender: FDA-Public Use
  Company Number: JP-NAPPMUNDI-GBR-2013-0016350

PATIENT
  Age: 85 Year
  Sex: Male
  Weight: 52 kg

DRUGS (12)
  1. BTDS 5 MG [Suspect]
     Indication: ANALGESIC THERAPY
     Dosage: 5 MCG, Q1H
     Route: 062
     Dates: start: 20130318, end: 20130426
  2. ROZEREM [Concomitant]
     Indication: INSOMNIA
     Dosage: 8 MG, UNK
     Route: 048
     Dates: start: 20110720, end: 20130419
  3. LONGES [Concomitant]
     Indication: HYPERTENSION
     Dosage: 10 MG, DAILY
     Route: 048
     Dates: start: 20010420, end: 20130419
  4. BAYASPIRIN [Concomitant]
     Indication: MYOCARDIAL INFARCTION
     Dosage: 100 MG, DAILY
     Route: 048
     Dates: start: 20080806, end: 20130419
  5. BAYASPIRIN [Concomitant]
     Indication: ANGINA PECTORIS
  6. BAYASPIRIN [Concomitant]
     Indication: CEREBRAL INFARCTION
  7. PLAVIX [Concomitant]
     Indication: MYOCARDIAL INFARCTION
     Dosage: 75 MG, UNK
     Route: 048
     Dates: start: 20110720, end: 20130419
  8. PLAVIX [Concomitant]
     Indication: ANGINA PECTORIS
  9. NEXIUM                             /01479302/ [Concomitant]
     Indication: GASTROOESOPHAGEAL REFLUX DISEASE
     Dosage: 20 MG, DAILY
     Route: 048
     Dates: start: 20110111, end: 20130419
  10. MAGNESIUM OXIDE [Concomitant]
     Indication: CONSTIPATION
     Dosage: 2.1 UNK, UNK
     Route: 048
     Dates: start: 20081017, end: 20130419
  11. SIGMART [Concomitant]
     Indication: ANGINA PECTORIS
     Dosage: 15 MG, DAILY
     Route: 048
     Dates: start: 20110720, end: 20130419
  12. ALLELOCK [Concomitant]
     Indication: RHINITIS ALLERGIC
     Dosage: 10 MG, DAILY
     Route: 048
     Dates: start: 20130304, end: 20130419

REACTIONS (1)
  - Cardiac failure [Fatal]
